FAERS Safety Report 14876598 (Version 1)
Quarter: 2018Q2

REPORT INFORMATION
  Report Type: Spontaneous
  Country: DE (occurrence: DE)
  Receive Date: 20180510
  Receipt Date: 20180510
  Transmission Date: 20180711
  Serious: Yes (Hospitalization, Other)
  Sender: FDA-Public Use
  Company Number: DE-TEVA-2018-DE-889968

PATIENT
  Age: 36 Year
  Sex: Male

DRUGS (4)
  1. CYCLOSPORINE-A [Suspect]
     Active Substance: CYCLOSPORINE
     Indication: GRAFT VERSUS HOST DISEASE IN SKIN
     Route: 065
  2. ECULIZUMAB [Suspect]
     Active Substance: ECULIZUMAB
     Indication: THROMBOTIC MICROANGIOPATHY
     Dosage: 16 INFUSIONS
     Route: 050
  3. METHYLPREDNISOLONE. [Suspect]
     Active Substance: METHYLPREDNISOLONE
     Indication: GRAFT VERSUS HOST DISEASE IN SKIN
     Route: 065
  4. MYCOPHENOLATE [Suspect]
     Active Substance: MYCOPHENOLIC ACID
     Indication: GRAFT VERSUS HOST DISEASE IN SKIN
     Route: 065

REACTIONS (11)
  - Thrombotic microangiopathy [Recovered/Resolved]
  - Cytomegalovirus infection [Recovered/Resolved]
  - Graft versus host disease in skin [None]
  - Myopathy [Unknown]
  - Platelet count decreased [None]
  - Red blood cell schistocytes present [None]
  - Human herpesvirus 6 infection [Recovered/Resolved]
  - Renal failure [None]
  - B-cell small lymphocytic lymphoma recurrent [None]
  - Haemolytic anaemia [None]
  - Infection in an immunocompromised host [None]
